FAERS Safety Report 11286755 (Version 1)
Quarter: 2015Q3

REPORT INFORMATION
  Report Type: Spontaneous
  Country: US (occurrence: None)
  Receive Date: 20150720
  Receipt Date: 20150720
  Transmission Date: 20151125
  Serious: Yes (Other)
  Sender: FDA-Public Use
  Company Number: None

PATIENT
  Age: 53 Year
  Sex: Female
  Weight: 104.33 kg

DRUGS (8)
  1. SIMIVASTIN [Concomitant]
  2. VITAMIN B, D [Concomitant]
  3. BYDUREON [Concomitant]
     Active Substance: EXENATIDE
  4. BYDUREON [Suspect]
     Active Substance: EXENATIDE
     Indication: TYPE 2 DIABETES MELLITUS
     Dosage: GIVEN INTO/UNDE THE SKIN
  5. GLUCOPHAG [Concomitant]
  6. MULTI VITAMIN [Concomitant]
     Active Substance: VITAMINS
  7. IRON [Concomitant]
     Active Substance: IRON
  8. WARFRIN [Concomitant]

REACTIONS (3)
  - Injection site reaction [None]
  - Injection site induration [None]
  - Product quality issue [None]

NARRATIVE: CASE EVENT DATE: 20150601
